FAERS Safety Report 22982597 (Version 2)
Quarter: 2023Q4

REPORT INFORMATION
  Report Type: Report from Study
  Country: FR (occurrence: None)
  Receive Date: 20230926
  Receipt Date: 20231009
  Transmission Date: 20240110
  Serious: Yes (Other)
  Sender: FDA-Public Use
  Company Number: FR-ROCHE-3426217

PATIENT
  Age: 0 Year
  Sex: Female
  Weight: 50 kg

DRUGS (2)
  1. PERTUZUMAB\TRASTUZUMAB [Suspect]
     Active Substance: PERTUZUMAB\TRASTUZUMAB
     Indication: Breast cancer metastatic
     Dosage: 600MG PERTUZUMAB,600 MG TRASUMAB AND 20.000 UNITS HYALURONIDASE
     Route: 058
     Dates: start: 20230818
  2. TUCATINIB [Suspect]
     Active Substance: TUCATINIB
     Indication: Breast cancer metastatic
     Dosage: THE SUBJECT RECEIVED THE LAST DOSE OF?TUCATINIB/PLACEBO PRIOR TO EVENT ONSET DATE ON 22-AUG-2023
     Route: 048
     Dates: start: 20230818

REACTIONS (1)
  - Diarrhoea [Recovered/Resolved]

NARRATIVE: CASE EVENT DATE: 20230823
